FAERS Safety Report 25885702 (Version 1)
Quarter: 2025Q4

REPORT INFORMATION
  Report Type: Spontaneous
  Country: TR (occurrence: TR)
  Receive Date: 20251006
  Receipt Date: 20251006
  Transmission Date: 20260118
  Serious: Yes (Other)
  Sender: PFIZER
  Company Number: TR-PFIZER INC-PV202500117859

PATIENT
  Age: 14 Year
  Sex: Male

DRUGS (2)
  1. CIBINQO [Suspect]
     Active Substance: ABROCITINIB
     Indication: Alopecia areata
     Dosage: 100 MG
  2. CIBINQO [Suspect]
     Active Substance: ABROCITINIB
     Dosage: 200 MG

REACTIONS (2)
  - Neutropenia [Unknown]
  - Off label use [Unknown]
